FAERS Safety Report 19233684 (Version 1)
Quarter: 2021Q2

REPORT INFORMATION
  Report Type: Spontaneous
  Country: US (occurrence: US)
  Receive Date: 20210507
  Receipt Date: 20210507
  Transmission Date: 20210717
  Serious: Yes (Death, Other)
  Sender: FDA-Public Use
  Company Number: US-ORGANON-O2105USA000484

PATIENT
  Age: 84 Year
  Sex: Male
  Weight: 76.19 kg

DRUGS (92)
  1. ABRAXANE [Suspect]
     Active Substance: PACLITAXEL
     Dosage: 223 MILLIGRAM
     Route: 042
     Dates: start: 20210206
  2. GEMCITABINE. [Suspect]
     Active Substance: GEMCITABINE
     Dosage: 1780 MILLIGRAM
     Route: 042
     Dates: start: 20210130
  3. GEMCITABINE. [Suspect]
     Active Substance: GEMCITABINE
     Dosage: 1800 MILLIGRAM
     Route: 042
     Dates: start: 20210202
  4. OXALIPLATIN. [Suspect]
     Active Substance: OXALIPLATIN
     Dosage: 112 MILLIGRAM
     Route: 042
     Dates: start: 20200708
  5. IRINOTECAN [Suspect]
     Active Substance: IRINOTECAN
     Dosage: 259 MILLIGRAM
     Route: 042
     Dates: start: 20200318
  6. IRINOTECAN [Suspect]
     Active Substance: IRINOTECAN
     Dosage: 259 MILLIGRAM
     Route: 042
     Dates: start: 20200422
  7. IRINOTECAN [Suspect]
     Active Substance: IRINOTECAN
     Dosage: 236 MILLIGRAM
     Route: 042
     Dates: start: 20200708
  8. IRINOTECAN [Suspect]
     Active Substance: IRINOTECAN
     Dosage: 236 MILLIGRAM
     Route: 042
     Dates: start: 20201117
  9. FLUOROURACIL. [Suspect]
     Active Substance: FLUOROURACIL
     Dosage: 525 MILLIGRAM
     Route: 042
     Dates: start: 20200727
  10. FLUOROURACIL. [Suspect]
     Active Substance: FLUOROURACIL
     Dosage: 3150 MILLIGRAM, OVER 46 HOURS
     Route: 042
     Dates: start: 20200727
  11. FLUOROURACIL. [Suspect]
     Active Substance: FLUOROURACIL
     Dosage: 3150 MILLIGRAM, OVER 46 HOURS
     Route: 042
     Dates: start: 20201020
  12. FLUOROURACIL. [Suspect]
     Active Substance: FLUOROURACIL
     Dosage: 525 MILLIGRAM
     Route: 042
     Dates: start: 20210105
  13. FLUOROURACIL. [Suspect]
     Active Substance: FLUOROURACIL
     Dosage: 534 MILLIGRAM
     Route: 042
     Dates: start: 20210120
  14. ABRAXANE [Suspect]
     Active Substance: PACLITAXEL
     Dosage: 226 MILLIGRAM
     Route: 042
     Dates: start: 20210227
  15. GEMCITABINE. [Suspect]
     Active Substance: GEMCITABINE
     Dosage: 1780 MILLIGRAM
     Route: 042
     Dates: start: 20191227
  16. OXALIPLATIN. [Suspect]
     Active Substance: OXALIPLATIN
     Dosage: 112 MILLIGRAM
     Route: 042
     Dates: start: 20201006
  17. IRINOTECAN [Suspect]
     Active Substance: IRINOTECAN
     Dosage: 236 MILLIGRAM
     Route: 042
     Dates: start: 20210105
  18. FLUOROURACIL. [Suspect]
     Active Substance: FLUOROURACIL
     Dosage: 3757 MILLIGRAM, OVER 46 HOURS
     Dates: start: 20200318
  19. FLUOROURACIL. [Suspect]
     Active Substance: FLUOROURACIL
     Dosage: 525 MILLIGRAM
     Route: 042
     Dates: start: 20200825
  20. FLUOROURACIL. [Suspect]
     Active Substance: FLUOROURACIL
     Dosage: 3150 MILLIGRAM, OVER 46 HOURS
     Route: 042
     Dates: start: 20200825
  21. ZOCOR [Suspect]
     Active Substance: SIMVASTATIN
     Dosage: 20 MILLIGRAM, QD
     Route: 048
  22. GLUCOSAMINE [Suspect]
     Active Substance: GLUCOSAMINE
     Dosage: 1000 MILLIGRAM, QD
  23. ABRAXANE [Suspect]
     Active Substance: PACLITAXEL
     Dosage: 220 MILLIGRAM
     Route: 042
     Dates: start: 20191227
  24. OXALIPLATIN. [Suspect]
     Active Substance: OXALIPLATIN
     Dosage: 140 MILLIGRAM
     Route: 042
     Dates: start: 20210318
  25. IRINOTECAN [Suspect]
     Active Substance: IRINOTECAN
     Dosage: 236 MILLIGRAM
     Route: 042
     Dates: start: 20200727
  26. IRINOTECAN [Suspect]
     Active Substance: IRINOTECAN
     Dosage: 236 MILLIGRAM
     Route: 042
     Dates: start: 20201020
  27. IRINOTECAN [Suspect]
     Active Substance: IRINOTECAN
     Dosage: 240 MILLIGRAM
     Route: 042
     Dates: start: 20210120
  28. FLUOROURACIL. [Suspect]
     Active Substance: FLUOROURACIL
     Dosage: 650 MILLIGRAM
     Route: 042
     Dates: start: 20200318
  29. FLUOROURACIL. [Suspect]
     Active Substance: FLUOROURACIL
     Dosage: 3150 MILLIGRAM, OVER 46 HOURS
     Route: 042
     Dates: start: 20200624
  30. FLUOROURACIL. [Suspect]
     Active Substance: FLUOROURACIL
     Dosage: 525 MILLIGRAM
     Route: 042
     Dates: start: 20200922
  31. KEYTRUDA [Suspect]
     Active Substance: PEMBROLIZUMAB
     Dosage: 200 MILLIGRAM
     Route: 042
     Dates: start: 20210311
  32. ABRAXANE [Suspect]
     Active Substance: PACLITAXEL
     Dosage: 223 MILLIGRAM
     Dates: start: 20210116
  33. GEMCITABINE. [Suspect]
     Active Substance: GEMCITABINE
     Dosage: 1780 MILLIGRAM
     Route: 042
     Dates: start: 20210109
  34. OXALIPLATIN. [Suspect]
     Active Substance: OXALIPLATIN
     Dosage: 140 MILLIGRAM
     Route: 042
     Dates: start: 20200610
  35. OXALIPLATIN. [Suspect]
     Active Substance: OXALIPLATIN
     Dosage: 112 MILLIGRAM
     Route: 042
     Dates: start: 20200811
  36. IRINOTECAN [Suspect]
     Active Substance: IRINOTECAN
     Dosage: 259 MILLIGRAM
     Route: 042
     Dates: start: 20200610
  37. FLUOROURACIL. [Suspect]
     Active Substance: FLUOROURACIL
     Dosage: 3750 MILLIGRAM, OVER 46 HOURS
     Route: 042
     Dates: start: 20200422
  38. FLUOROURACIL. [Suspect]
     Active Substance: FLUOROURACIL
     Dosage: 3150 MILLIGRAM, OVER 46 HOURS
     Route: 042
     Dates: start: 20201006
  39. ABRAXANE [Suspect]
     Active Substance: PACLITAXEL
     Dosage: 223 MILLIGRAM
     Route: 042
     Dates: start: 20200102
  40. GEMCITABINE. [Suspect]
     Active Substance: GEMCITABINE
     Dosage: 1780 MILLIGRAM
     Route: 042
     Dates: start: 20210116
  41. OXALIPLATIN. [Suspect]
     Active Substance: OXALIPLATIN
     Dosage: 112 MILLIGRAM
     Dates: start: 20200908
  42. OXALIPLATIN. [Suspect]
     Active Substance: OXALIPLATIN
     Dosage: 112 MILLIGRAM
     Route: 042
     Dates: start: 20201117
  43. IRINOTECAN [Suspect]
     Active Substance: IRINOTECAN
     Dosage: 236 MILLIGRAM
     Route: 042
     Dates: start: 20200908
  44. IRINOTECAN [Suspect]
     Active Substance: IRINOTECAN
     Dosage: 236 MILLIGRAM
     Route: 042
     Dates: start: 20201006
  45. FLUOROURACIL. [Suspect]
     Active Substance: FLUOROURACIL
     Dosage: 3750 MILLIGRAM, OVER 46 HOURS
     Route: 042
     Dates: start: 20200610
  46. FLUOROURACIL. [Suspect]
     Active Substance: FLUOROURACIL
     Dosage: 525 MILLIGRAM
     Route: 042
     Dates: start: 20200624
  47. FLUOROURACIL. [Suspect]
     Active Substance: FLUOROURACIL
     Dosage: 3150 MILLIGRAM, OVER 46 HOURS
     Route: 042
     Dates: start: 20200922
  48. FLUOROURACIL. [Suspect]
     Active Substance: FLUOROURACIL
     Dosage: 525 MILLIGRAM
     Route: 042
     Dates: start: 20201020
  49. FLUOROURACIL. [Suspect]
     Active Substance: FLUOROURACIL
     Dosage: 3150 MILLIGRAM, OVER 46 HOURS
     Route: 042
     Dates: start: 20201103
  50. FLUOROURACIL. [Suspect]
     Active Substance: FLUOROURACIL
     Dosage: 3204 MILLIGRAM, OVER 46 HOURS
     Route: 042
     Dates: start: 20210120
  51. ABRAXANE [Suspect]
     Active Substance: PACLITAXEL
     Dosage: 223 MILLIGRAM
     Route: 042
     Dates: start: 20210109
  52. ABRAXANE [Suspect]
     Active Substance: PACLITAXEL
     Dosage: 223 MILLIGRAM
     Route: 042
     Dates: start: 20210130
  53. ABRAXANE [Suspect]
     Active Substance: PACLITAXEL
     Dosage: 226 MILLIGRAM
     Route: 042
     Dates: start: 20210202
  54. GEMCITABINE. [Suspect]
     Active Substance: GEMCITABINE
     Dosage: 1780 MILLIGRAM
     Route: 042
     Dates: start: 20200102
  55. GEMCITABINE. [Suspect]
     Active Substance: GEMCITABINE
     Dosage: 1780 MILLIGRAM
     Route: 042
     Dates: start: 20210206
  56. OXALIPLATIN. [Suspect]
     Active Substance: OXALIPLATIN
     Dosage: 140 MILLIGRAM
     Route: 042
     Dates: start: 20200422
  57. OXALIPLATIN. [Suspect]
     Active Substance: OXALIPLATIN
     Dosage: 112 MILLIGRAM
     Route: 042
     Dates: start: 20200922
  58. OXALIPLATIN. [Suspect]
     Active Substance: OXALIPLATIN
     Dosage: 112 MILLIGRAM
     Route: 042
     Dates: start: 20201020
  59. OXALIPLATIN. [Suspect]
     Active Substance: OXALIPLATIN
     Dosage: 112 MILLIGRAM
     Route: 042
     Dates: start: 20210105
  60. IRINOTECAN [Suspect]
     Active Substance: IRINOTECAN
     Dosage: 259 MILLIGRAM
     Route: 042
     Dates: start: 20200401
  61. IRINOTECAN [Suspect]
     Active Substance: IRINOTECAN
     Dosage: 236 MILLIGRAM
     Route: 042
     Dates: start: 20200624
  62. IRINOTECAN [Suspect]
     Active Substance: IRINOTECAN
     Dosage: 236 MILLIGRAM
     Route: 042
     Dates: start: 20200825
  63. FLUOROURACIL. [Suspect]
     Active Substance: FLUOROURACIL
     Dosage: 650 MILLIGRAM
     Route: 042
     Dates: start: 20200610
  64. FLUOROURACIL. [Suspect]
     Active Substance: FLUOROURACIL
     Dosage: 525 MILLIGRAM
     Route: 042
     Dates: start: 20200811
  65. FLUOROURACIL. [Suspect]
     Active Substance: FLUOROURACIL
     Dosage: 525 MILLIGRAM
     Route: 042
     Dates: start: 20200908
  66. FLUOROURACIL. [Suspect]
     Active Substance: FLUOROURACIL
     Dosage: 525 MILLIGRAM
     Route: 042
     Dates: start: 20201117
  67. KEYTRUDA [Suspect]
     Active Substance: PEMBROLIZUMAB
     Dosage: 200 MILLIGRAM
     Route: 042
     Dates: start: 20210401
  68. PROSCAR [Suspect]
     Active Substance: FINASTERIDE
     Dosage: 5 MILLIGRAM, QD
     Route: 048
  69. ABRAXANE [Suspect]
     Active Substance: PACLITAXEL
     Dosage: 220 MILLIGRAM
     Route: 042
     Dates: start: 20191219
  70. OXALIPLATIN. [Suspect]
     Active Substance: OXALIPLATIN
     Dosage: 112 MILLIGRAM
     Route: 042
     Dates: start: 20200727
  71. OXALIPLATIN. [Suspect]
     Active Substance: OXALIPLATIN
     Dosage: 112 MILLIGRAM
     Route: 042
     Dates: start: 20200825
  72. FLUOROURACIL. [Suspect]
     Active Substance: FLUOROURACIL
     Dosage: 650 MILLIGRAM
     Route: 042
     Dates: start: 20200401
  73. FLUOROURACIL. [Suspect]
     Active Substance: FLUOROURACIL
     Dosage: 3750 MILLIGRAM, OVER 46 HOURS
     Route: 042
     Dates: start: 20200401
  74. FLUOROURACIL. [Suspect]
     Active Substance: FLUOROURACIL
     Dosage: 650 MILLIGRAM
     Route: 042
     Dates: start: 20200422
  75. LISINOPRIL. [Suspect]
     Active Substance: LISINOPRIL
     Dosage: 20 MILLIGRAM, QD
  76. TIMOLOL HEMIHYDRATE [Suspect]
     Active Substance: TIMOLOL
     Dosage: UNK, BID
  77. GEMCITABINE. [Suspect]
     Active Substance: GEMCITABINE
     Dosage: 1760 MILLIGRAM
     Route: 042
     Dates: start: 20191219
  78. GEMCITABINE. [Suspect]
     Active Substance: GEMCITABINE
     Dosage: 1800 MILLIGRAM
     Route: 042
     Dates: start: 20210227
  79. OXALIPLATIN. [Suspect]
     Active Substance: OXALIPLATIN
     Dosage: 140 MILLIGRAM
     Route: 042
     Dates: start: 20200401
  80. OXALIPLATIN. [Suspect]
     Active Substance: OXALIPLATIN
     Dosage: 112 MILLIGRAM
     Route: 042
     Dates: start: 20200624
  81. OXALIPLATIN. [Suspect]
     Active Substance: OXALIPLATIN
     Dosage: 112 MILLIGRAM
     Route: 042
     Dates: start: 20201103
  82. IRINOTECAN [Suspect]
     Active Substance: IRINOTECAN
     Dosage: 236 MILLIGRAM
     Route: 042
     Dates: start: 20200811
  83. IRINOTECAN [Suspect]
     Active Substance: IRINOTECAN
     Dosage: 236 MILLIGRAM
     Route: 042
     Dates: start: 20200922
  84. IRINOTECAN [Suspect]
     Active Substance: IRINOTECAN
     Dosage: 236 MILLIGRAM
     Route: 042
     Dates: start: 20201103
  85. FLUOROURACIL. [Suspect]
     Active Substance: FLUOROURACIL
     Dosage: 525 MILLIGRAM
     Route: 042
     Dates: start: 20200708
  86. FLUOROURACIL. [Suspect]
     Active Substance: FLUOROURACIL
     Dosage: 3150 MILLIGRAM, OVER 46 HOURS
     Route: 042
     Dates: start: 20200708
  87. FLUOROURACIL. [Suspect]
     Active Substance: FLUOROURACIL
     Dosage: 3150 MILLIGRAM, OVER 46 HOURS
     Route: 042
     Dates: start: 20200811
  88. FLUOROURACIL. [Suspect]
     Active Substance: FLUOROURACIL
     Dosage: 3150 MILLIGRAM, OVER 46 HOURS
     Route: 042
     Dates: start: 20200908
  89. FLUOROURACIL. [Suspect]
     Active Substance: FLUOROURACIL
     Dosage: 525 MILLIGRAM
     Route: 042
     Dates: start: 20201006
  90. FLUOROURACIL. [Suspect]
     Active Substance: FLUOROURACIL
     Dosage: 525 MILLIGRAM
     Route: 042
     Dates: start: 20201103
  91. FLUOROURACIL. [Suspect]
     Active Substance: FLUOROURACIL
     Dosage: 3150 MILLIGRAM, OVER 46 HOURS
     Route: 042
     Dates: start: 20201117
  92. FLUOROURACIL. [Suspect]
     Active Substance: FLUOROURACIL
     Dosage: 3150 MILLIGRAM, OVER 46 HOURS
     Route: 042
     Dates: start: 20210105

REACTIONS (1)
  - Death [Fatal]

NARRATIVE: CASE EVENT DATE: 20210413
